FAERS Safety Report 4771367-X (Version None)
Quarter: 2005Q3

REPORT INFORMATION
  Report Type: 
  Country: None (occurrence: None)
  Receive Date: 20050914
  Receipt Date: 20050829
  Transmission Date: 20060218
  Serious: Yes (Other)
  Sender: FDA-Public Use
  Company Number: USA050393390

PATIENT
  Age: 66 Year
  Sex: Female

DRUGS (21)
  1. FORTEO [Suspect]
     Indication: OSTEOPOROSIS
     Dosage: 20 UG/1 DAY
     Dates: start: 20050304
  2. ANTIVERT [Concomitant]
  3. STOOL SOFTENER (DOCUSATE SODIUM) [Concomitant]
  4. TENORMIN [Concomitant]
  5. IMDUR [Concomitant]
  6. NORVASC [Concomitant]
  7. NITROSTAT [Concomitant]
  8. CRESTOR [Concomitant]
  9. ROBAXIN [Concomitant]
  10. CHLORQUINE PHOSPHATE [Concomitant]
  11. LASIX [Concomitant]
  12. CHLOROCON (CHLOROQUINE PHOSPHATE) [Concomitant]
  13. VALIUM [Concomitant]
  14. LORTAB [Concomitant]
  15. TETRAZEPAM [Concomitant]
  16. ULTRACET [Concomitant]
  17. ASPIRIN [Concomitant]
  18. CALCIUM WITH VITAMIN D [Concomitant]
  19. MULTI-VITAMIN [Concomitant]
  20. RANITIDINE [Concomitant]
  21. PREDNISONE [Concomitant]

REACTIONS (13)
  - BACK PAIN [None]
  - BLOOD CALCIUM INCREASED [None]
  - CARDIAC DISORDER [None]
  - CONSTIPATION [None]
  - DIZZINESS [None]
  - DRUG DOSE OMISSION [None]
  - EYE IRRITATION [None]
  - EYE PAIN [None]
  - MUSCLE SPASMS [None]
  - NOCTURIA [None]
  - OEDEMA PERIPHERAL [None]
  - PHARMACEUTICAL PRODUCT COMPLAINT [None]
  - RENAL PAIN [None]
